FAERS Safety Report 4389938-1 (Version None)
Quarter: 2004Q2

REPORT INFORMATION
  Report Type: 
  Country: None (occurrence: None)
  Receive Date: 20040630
  Receipt Date: 20040615
  Transmission Date: 20050107
  Serious: Yes (Other)
  Sender: FDA-Public Use
  Company Number: JP-JNJFOC-20040605699

PATIENT
  Age: 58 Year
  Sex: Male

DRUGS (5)
  1. FENTANYL [Suspect]
     Indication: CANCER PAIN
     Dosage: 2.5 MG, 1 IN 72 HOUR, TRANSDERMAL : 5 MG, 1 IN 72 HOUR, TRANSDERMAL
     Route: 062
     Dates: start: 20040513, end: 20040524
  2. FENTANYL [Suspect]
     Indication: CANCER PAIN
     Dosage: 2.5 MG, 1 IN 72 HOUR, TRANSDERMAL : 5 MG, 1 IN 72 HOUR, TRANSDERMAL
     Route: 062
     Dates: start: 20040525
  3. SODIUM PICOSULFATE [Concomitant]
  4. TEGAFUR [Concomitant]
  5. MORPHINE HYDROCHLORIDE [Concomitant]

REACTIONS (2)
  - ANAEMIA [None]
  - CONDITION AGGRAVATED [None]
